FAERS Safety Report 4390894-0 (Version None)
Quarter: 2004Q3

REPORT INFORMATION
  Report Type: 
  Country: None (occurrence: None)
  Receive Date: 20040702
  Receipt Date: 20040702
  Transmission Date: 20050211
  Serious: Yes (Hospitalization)
  Sender: FDA-Public Use
  Company Number: None

PATIENT
  Sex: Female
  Weight: 87.9978 kg

DRUGS (10)
  1. ZYVOX [Suspect]
     Indication: CATHETER SITE DISCHARGE
     Dosage: 600 MG Q 12 H INTRAVENOUS
     Route: 042
     Dates: start: 20040616, end: 20040623
  2. ZYVOX [Suspect]
     Indication: CATHETER SITE INFECTION
     Dosage: 600 MG Q 12 H INTRAVENOUS
     Route: 042
     Dates: start: 20040616, end: 20040623
  3. ZYVOX [Suspect]
     Indication: STAPHYLOCOCCAL INFECTION
     Dosage: 600 MG Q 12 H INTRAVENOUS
     Route: 042
     Dates: start: 20040616, end: 20040623
  4. FLUOXETINE [Suspect]
     Indication: DEPRESSION
     Dosage: 60 MG Q AM ORAL
     Route: 048
     Dates: start: 20030903, end: 20040618
  5. DEXAMETHASONE [Concomitant]
  6. HEPARIN [Concomitant]
  7. HYDROMORPHONE HCL [Concomitant]
  8. LORAZEPAM [Concomitant]
  9. METHADONE HCL [Concomitant]
  10. ALBUTEROL [Concomitant]

REACTIONS (2)
  - DRUG INTERACTION [None]
  - GRAND MAL CONVULSION [None]
